FAERS Safety Report 7567964-9 (Version None)
Quarter: 2011Q2

REPORT INFORMATION
  Report Type: 
  Country: None (occurrence: None)
  Receive Date: 20110623
  Receipt Date: 20110614
  Transmission Date: 20111010
  Serious: Yes (Life-Threatening, Hospitalization, Other)
  Sender: FDA-Public Use
  Company Number: JP-BRISTOL-MYERS SQUIBB COMPANY-15849573

PATIENT
  Age: 54 Year
  Sex: Male

DRUGS (6)
  1. NORVASC [Suspect]
  2. ACTOS [Suspect]
  3. DIOVAN [Suspect]
  4. METFORMIN HCL [Suspect]
     Dosage: 80TABLETS
     Route: 048
     Dates: start: 20110614, end: 20110614
  5. ASPIRIN [Suspect]
  6. AMARYL [Suspect]

REACTIONS (2)
  - OVERDOSE [None]
  - CARDIO-RESPIRATORY ARREST [None]
